FAERS Safety Report 8301154-7 (Version None)
Quarter: 2012Q2

REPORT INFORMATION
  Report Type: 
  Country: None (occurrence: None)
  Receive Date: 20120420
  Receipt Date: 20120410
  Transmission Date: 20120825
  Serious: Yes (Hospitalization)
  Sender: FDA-Public Use
  Company Number: PHHY2012ES032750

PATIENT
  Age: 62 Year
  Sex: Male

DRUGS (6)
  1. PAROXETINE [Concomitant]
  2. RANITIDINE [Concomitant]
  3. SPIRIVA [Concomitant]
  4. ROFLUMILAST [Suspect]
     Dates: end: 20120329
  5. FLUTICASONE PROPIONATE/SALMETEROL [Concomitant]
  6. ONBREZ [Suspect]
     Dates: end: 20120329

REACTIONS (2)
  - DIARRHOEA [None]
  - URTICARIA [None]
